FAERS Safety Report 24432297 (Version 1)
Quarter: 2024Q4

REPORT INFORMATION
  Report Type: Spontaneous
  Country: US (occurrence: US)
  Receive Date: 20241014
  Receipt Date: 20241014
  Transmission Date: 20250114
  Serious: No
  Sender: SANOFI AVENTIS
  Company Number: US-SA-2024SA275845

PATIENT
  Age: 51 Year
  Sex: Male
  Weight: 88.9 kg

DRUGS (6)
  1. DUPIXENT [Suspect]
     Active Substance: DUPILUMAB
     Indication: Dermatitis atopic
     Dosage: 300 MG, QOW
     Route: 058
     Dates: start: 20240227
  2. BUSPIRONE HCL [Concomitant]
     Active Substance: BUSPIRONE HYDROCHLORIDE
  3. TRIAMCINOLONE ACETONIDE [Concomitant]
     Active Substance: TRIAMCINOLONE ACETONIDE
  4. LISINOPRIL [Concomitant]
     Active Substance: LISINOPRIL
  5. TACROLIMUS [Concomitant]
     Active Substance: TACROLIMUS
  6. MOMETASONE FUROATE [Concomitant]
     Active Substance: MOMETASONE FUROATE

REACTIONS (2)
  - Eczema [Recovered/Resolved]
  - Skin fissures [Recovered/Resolved]

NARRATIVE: CASE EVENT DATE: 20240829
